FAERS Safety Report 7010932-6 (Version None)
Quarter: 2010Q3

REPORT INFORMATION
  Report Type: 
  Country: None (occurrence: None)
  Receive Date: 20100923
  Receipt Date: 20100923
  Transmission Date: 20110219
  Serious: Yes (Other)
  Sender: FDA-Public Use
  Company Number: None

PATIENT
  Age: 79 Year
  Sex: Male
  Weight: 80.7403 kg

DRUGS (1)
  1. SULFAMETHOXAZOLE AND TRIMETHOPRIM [Suspect]
     Indication: NOCARDIOSIS
     Dosage: 1 1/2 TABLETS 2X/DAY
     Dates: start: 20100123, end: 20100317

REACTIONS (1)
  - NECK PAIN [None]
